FAERS Safety Report 19743764 (Version 1)
Quarter: 2021Q3

REPORT INFORMATION
  Report Type: Spontaneous
  Country: US (occurrence: US)
  Receive Date: 20210823
  Receipt Date: 20210823
  Transmission Date: 20211014
  Serious: Yes (Other)
  Sender: FDA-Public Use
  Company Number: None

PATIENT
  Age: 52 Year
  Sex: Female
  Weight: 74.25 kg

DRUGS (8)
  1. POLIGRIP [Suspect]
     Active Substance: MALEIC ACID\METHYL VINYL ETHER
     Indication: DENTAL OPERATION
     Dates: start: 20210823, end: 20210823
  2. KRILL OIL [Concomitant]
     Active Substance: DIETARY SUPPLEMENT\KRILL OIL
  3. ECHINACEA [Concomitant]
     Active Substance: ECHINACEA, UNSPECIFIED
  4. VITAMIN D [Concomitant]
     Active Substance: VITAMIN D NOS
  5. MULTIVITAMIN [Concomitant]
     Active Substance: VITAMINS
  6. KRILL OIL [Concomitant]
     Active Substance: DIETARY SUPPLEMENT\KRILL OIL
  7. VITAMIN D [Concomitant]
     Active Substance: VITAMIN D NOS
  8. OREGANO LEAF OIL. [Concomitant]
     Active Substance: OREGANO LEAF OIL

REACTIONS (2)
  - Oral discomfort [None]
  - Swelling [None]

NARRATIVE: CASE EVENT DATE: 20210823
